FAERS Safety Report 24116414 (Version 1)
Quarter: 2024Q3

REPORT INFORMATION
  Report Type: Spontaneous
  Country: US (occurrence: US)
  Receive Date: 20240722
  Receipt Date: 20240722
  Transmission Date: 20241017
  Serious: No
  Sender: ASTELLAS
  Company Number: US-ASTELLAS-2023US037483

PATIENT
  Age: 87 Year
  Sex: Male

DRUGS (4)
  1. MYRBETRIQ [Interacting]
     Active Substance: MIRABEGRON
     Indication: Hypertonic bladder
     Route: 065
     Dates: start: 20231019, end: 20231210
  2. METOPROLOL [Interacting]
     Active Substance: METOPROLOL
     Indication: Product used for unknown indication
     Dosage: UNK UNK, UNKNOWN FREQ.
     Route: 065
  3. ASPIRIN [Concomitant]
     Active Substance: ASPIRIN
     Indication: Product used for unknown indication
     Dosage: UNK UNK, UNKNOWN FREQ.
     Route: 065
  4. MINERALS\VITAMINS [Concomitant]
     Active Substance: MINERALS\VITAMINS
     Indication: Product used for unknown indication
     Dosage: UNK UNK, ONCE DAILY (IN THE MORNING)
     Route: 065

REACTIONS (16)
  - Myalgia [Unknown]
  - Back pain [Unknown]
  - Fatigue [Unknown]
  - Nervousness [Unknown]
  - Condition aggravated [Unknown]
  - Confusional state [Unknown]
  - Illness [Unknown]
  - Pain [Unknown]
  - Constipation [Unknown]
  - Mass [Unknown]
  - Arthralgia [Unknown]
  - Pain in extremity [Unknown]
  - Discomfort [Unknown]
  - Chills [Unknown]
  - Bladder pain [Unknown]
  - Drug interaction [Unknown]
